FAERS Safety Report 15555791 (Version 1)
Quarter: 2018Q4

REPORT INFORMATION
  Report Type: Report from Study
  Country: None (occurrence: GR)
  Receive Date: 20181026
  Receipt Date: 20181026
  Transmission Date: 20190205
  Serious: Yes (Other)
  Sender: FDA-Public Use
  Company Number: GR-BAUSCH-BL-2018-028905

PATIENT
  Age: 67 Year
  Sex: Female

DRUGS (9)
  1. LENALIDOMIDE [Suspect]
     Active Substance: LENALIDOMIDE
     Dosage: AFTER THE COMPLETION OF ANTILEISHMANIAL MEDICATION, RE-STARTED ANTIMYELOMA THERAPY (DARARD)
     Route: 048
     Dates: start: 2016, end: 2016
  2. LENALIDOMIDE [Suspect]
     Active Substance: LENALIDOMIDE
     Dosage: RESTARTED ANTIMYELOMA TREATMENT WITH DARARD, REMAINING IN HEMATOLOGIC VGPR
     Route: 048
  3. DARATUMUMAB [Suspect]
     Active Substance: DARATUMUMAB
     Indication: PLASMA CELL MYELOMA
     Dosage: ON DAY 1 IN A 28-DAY CYCLE
     Route: 042
     Dates: start: 201403, end: 201602
  4. DEXAMETHASONE. [Suspect]
     Active Substance: DEXAMETHASONE
     Dosage: RESTARTED ANTIMYELOMA TREATMENT WITH DARARD, REMAINING IN HEMATOLOGIC VGPR
     Route: 048
  5. DEXAMETHASONE. [Suspect]
     Active Substance: DEXAMETHASONE
     Dosage: AFTER THE COMPLETION OF ANTILEISHMANIAL MEDICATION, RE-STARTED ANTIMYELOMA THERAPY (DARARD)
     Route: 048
     Dates: start: 2016, end: 2016
  6. DARATUMUMAB [Suspect]
     Active Substance: DARATUMUMAB
     Dosage: AFTER THE COMPLETION OF ANTILEISHMANIAL MEDICATION, RE-STARTED ANTIMYELOMA THERAPY (DARARD)
     Route: 042
     Dates: start: 2016, end: 2016
  7. DARATUMUMAB [Suspect]
     Active Substance: DARATUMUMAB
     Dosage: RESTARTED ANTIMYELOMA TREATMENT WITH DARARD, REMAINING IN HEMATOLOGIC VGPR
     Route: 042
  8. DEXAMETHASONE. [Suspect]
     Active Substance: DEXAMETHASONE
     Indication: PLASMA CELL MYELOMA
     Dosage: 28-DAY CYCLE
     Route: 048
     Dates: start: 201405, end: 201602
  9. LENALIDOMIDE [Suspect]
     Active Substance: LENALIDOMIDE
     Indication: PLASMA CELL MYELOMA
     Dosage: DAYS 1-21 IN A 28-DAY CYCLE
     Route: 048
     Dates: start: 201405, end: 201602

REACTIONS (1)
  - Visceral leishmaniasis [Recovered/Resolved]

NARRATIVE: CASE EVENT DATE: 201602
